FAERS Safety Report 22097899 (Version 17)
Quarter: 2024Q1

REPORT INFORMATION
  Report Type: Spontaneous
  Country: CA (occurrence: CA)
  Receive Date: 20230315
  Receipt Date: 20240316
  Transmission Date: 20240410
  Serious: Yes (Other)
  Sender: FDA-Public Use
  Company Number: CA-CELLTRION INC.-2023CA005445

PATIENT

DRUGS (13)
  1. INFLECTRA [Suspect]
     Active Substance: INFLIXIMAB-DYYB
     Indication: Crohn^s disease
     Dosage: 238 MG, W0, W2, W6 AND Q8 WEEKS (WEEK 0)
     Route: 042
     Dates: start: 20230221
  2. INFLECTRA [Suspect]
     Active Substance: INFLIXIMAB-DYYB
     Dosage: 238 MG, W0, W2, W6 AND Q8 WEEKS (WEEK 2)
     Route: 042
     Dates: start: 20230307
  3. INFLECTRA [Suspect]
     Active Substance: INFLIXIMAB-DYYB
     Dosage: 238 MG, W0, W2, W6 AND Q8 WEEKS
     Route: 042
     Dates: start: 20230405
  4. INFLECTRA [Suspect]
     Active Substance: INFLIXIMAB-DYYB
     Dosage: 238 MG (5 MG/KG), W0, W2, W6 AND Q8 WEEKS
     Route: 042
     Dates: start: 20230530
  5. INFLECTRA [Suspect]
     Active Substance: INFLIXIMAB-DYYB
     Dosage: 240 MG, (5MG/KG) EVERY 8 WEEKS
     Route: 042
     Dates: start: 20230726
  6. INFLECTRA [Suspect]
     Active Substance: INFLIXIMAB-DYYB
     Dosage: 5 MG/KG (245MG), WEEK 0 - REINDUCTION (Q0,2,6 WEEKS, THEN EVERY 8 WEEKS)
     Route: 042
     Dates: start: 20231116, end: 20231116
  7. INFLECTRA [Suspect]
     Active Substance: INFLIXIMAB-DYYB
     Dosage: 10 MG/KG (480MG) Q 1, 4, THEN EVERY 4 WEEKS
     Route: 042
     Dates: start: 20231213
  8. INFLECTRA [Suspect]
     Active Substance: INFLIXIMAB-DYYB
     Dosage: 10 MG/KG (480MG) Q 1, 4, THEN EVERY 4 WEEKS
     Route: 042
     Dates: start: 20231213
  9. INFLECTRA [Suspect]
     Active Substance: INFLIXIMAB-DYYB
     Dosage: 10 MG/KG (480MG) Q 1, 4, THEN EVERY 4 WEEKS
     Route: 042
     Dates: start: 20231213
  10. INFLECTRA [Suspect]
     Active Substance: INFLIXIMAB-DYYB
     Dosage: 480 MG (10MG/KG), 4 WEEKS (SUPPOSED TO RECEIVE 10 MG/KG Q 0, 1, 4, THEN EVERY 4 WEEKS)
     Route: 042
     Dates: start: 20240110
  11. INFLECTRA [Suspect]
     Active Substance: INFLIXIMAB-DYYB
     Dosage: 480 MG, 4 WEEKS AND 1 DAY,(Q 0, 1, 4, THEN EVERY 4 WEEKS)
     Route: 042
     Dates: start: 20240208
  12. INFLECTRA [Suspect]
     Active Substance: INFLIXIMAB-DYYB
     Dosage: 5 MG/KG, Q 0,2,6 WEEKS, THEN EVERY 8 WEEKS (500MG, 4 WEEKS)
     Route: 042
     Dates: start: 20240307
  13. TRAMADOL [Concomitant]
     Active Substance: TRAMADOL\TRAMADOL HYDROCHLORIDE
     Dosage: 50 MG
     Route: 048

REACTIONS (21)
  - Condition aggravated [Recovering/Resolving]
  - Off label use [Unknown]
  - Arthralgia [Recovered/Resolved]
  - Dizziness [Unknown]
  - Weight decreased [Unknown]
  - Nausea [Unknown]
  - Anxiety [Unknown]
  - Disease recurrence [Unknown]
  - Decreased appetite [Unknown]
  - Panic attack [Not Recovered/Not Resolved]
  - Pyrexia [Not Recovered/Not Resolved]
  - Pharyngitis streptococcal [Recovering/Resolving]
  - Oropharyngeal pain [Recovering/Resolving]
  - Nasopharyngitis [Recovering/Resolving]
  - Asthenia [Recovering/Resolving]
  - Influenza [Recovering/Resolving]
  - Ear discomfort [Recovering/Resolving]
  - Mouth ulceration [Not Recovered/Not Resolved]
  - Abdominal discomfort [Unknown]
  - Pain [Recovering/Resolving]
  - Aphthous ulcer [Recovered/Resolved]

NARRATIVE: CASE EVENT DATE: 20230101
